FAERS Safety Report 5798678-3 (Version None)
Quarter: 2008Q2

REPORT INFORMATION
  Report Type: 
  Country: None (occurrence: None)
  Receive Date: 20080630
  Receipt Date: 20080611
  Transmission Date: 20081010
  Serious: Yes (Life-Threatening)
  Sender: FDA-Public Use
  Company Number: 2008PV000052

PATIENT
  Age: 64 Year
  Sex: Female

DRUGS (4)
  1. DEPOCYT [Suspect]
     Indication: CENTRAL NERVOUS SYSTEM LYMPHOMA
     Dosage: 50 MG;1X;INH
     Route: 055
     Dates: start: 20080603, end: 20080603
  2. IFOSFAMIDE [Concomitant]
  3. DEXAMETHASONE [Concomitant]
  4. METHOTREXATE [Concomitant]

REACTIONS (5)
  - DEPRESSED LEVEL OF CONSCIOUSNESS [None]
  - DYSPNOEA [None]
  - GENERAL PHYSICAL HEALTH DETERIORATION [None]
  - NEUROTOXICITY [None]
  - PYREXIA [None]
